FAERS Safety Report 9622960 (Version 3)
Quarter: 2013Q4

REPORT INFORMATION
  Report Type: Spontaneous
  Country: US (occurrence: US)
  Receive Date: 20131015
  Receipt Date: 20131025
  Transmission Date: 20140711
  Serious: Yes (Other)
  Sender: FDA-Public Use
  Company Number: US-GILEAD-2013-0083471

PATIENT
  Sex: Female

DRUGS (3)
  1. LETAIRIS [Suspect]
     Indication: PULMONARY HYPERTENSION
     Dosage: 5 MG, UNK
     Route: 048
     Dates: start: 20130115
  2. LETAIRIS [Suspect]
     Indication: DRUG ABUSE
  3. TRACLEER /01587701/ [Suspect]
     Indication: PULMONARY HYPERTENSION

REACTIONS (6)
  - Hepatic congestion [Unknown]
  - Cardiac failure congestive [Unknown]
  - Right ventricular failure [Unknown]
  - Non-alcoholic steatohepatitis [Unknown]
  - Liver function test abnormal [Unknown]
  - Hepatic steatosis [Unknown]
